FAERS Safety Report 5498695-7 (Version None)
Quarter: 2007Q4

REPORT INFORMATION
  Report Type: 
  Country: None (occurrence: None)
  Receive Date: 20071026
  Receipt Date: 20071015
  Transmission Date: 20080405
  Serious: Yes (Hospitalization)
  Sender: FDA-Public Use
  Company Number: JP-NOVOPROD-268496

PATIENT
  Age: 63 Year
  Sex: Female

DRUGS (8)
  1. NOVORAPID 30 MIX CHU [Suspect]
     Indication: INSULIN-REQUIRING TYPE II DIABETES MELLITUS
     Dosage: 8 IU, QD
     Route: 058
     Dates: start: 20070904, end: 20071012
  2. LIPITOR [Concomitant]
     Dosage: 10 MG, UNK
     Route: 048
     Dates: start: 20060501
  3. ASPIRIN [Concomitant]
     Dosage: 100 MG, UNK
     Route: 048
     Dates: start: 20060501
  4. TANATRIL [Concomitant]
     Dosage: 5 MG, UNK
     Route: 048
     Dates: start: 20060501
  5. ADALAT [Concomitant]
     Dosage: 40 MG, UNK
     Route: 048
     Dates: start: 20060501
  6. GLYBURIDE [Concomitant]
     Dosage: 5 MG, UNK
     Route: 048
     Dates: start: 20070912, end: 20071012
  7. MELBIN                             /00082702/ [Concomitant]
     Dosage: 500 MG, UNK
     Route: 048
     Dates: start: 20070912, end: 20071001
  8. MIGLITOL [Concomitant]
     Dosage: 150 MG, UNK
     Route: 048
     Dates: start: 20070912, end: 20071015

REACTIONS (1)
  - ALANINE AMINOTRANSFERASE INCREASED [None]
